FAERS Safety Report 19740905 (Version 1)
Quarter: 2021Q3

REPORT INFORMATION
  Report Type: Spontaneous
  Country: JP (occurrence: JP)
  Receive Date: 20210825
  Receipt Date: 20210825
  Transmission Date: 20211014
  Serious: Yes (Other)
  Sender: FDA-Public Use
  Company Number: JP-ROCHE-2896298

PATIENT
  Age: 64 Year
  Sex: Male
  Weight: 94 kg

DRUGS (8)
  1. LICKLE [Concomitant]
     Active Substance: ISOLEUCINE\LEUCINE\VALINE
     Dosage: 1 DOSAGE FORM, TID
     Route: 048
     Dates: start: 20201127
  2. TERAMURO [Concomitant]
     Dosage: 1 DOSAGE FORM
     Route: 048
  3. AVASTIN [Suspect]
     Active Substance: BEVACIZUMAB
     Indication: HEPATOCELLULAR CARCINOMA
     Route: 041
     Dates: start: 20201217, end: 20210218
  4. CARVEDILOL. [Concomitant]
     Active Substance: CARVEDILOL
  5. TECENTRIQ [Suspect]
     Active Substance: ATEZOLIZUMAB
     Indication: HEPATOCELLULAR CARCINOMA
     Route: 041
     Dates: start: 20201217, end: 20210218
  6. PARIET [Concomitant]
     Active Substance: RABEPRAZOLE SODIUM
     Dosage: 10 MILLIGRAM, QD
     Route: 048
     Dates: start: 20201030
  7. AMLODIPINE BESILATE [Concomitant]
     Active Substance: AMLODIPINE BESYLATE
     Route: 065
  8. FEBURIC [Concomitant]
     Active Substance: FEBUXOSTAT
     Route: 065

REACTIONS (1)
  - Interstitial lung disease [Unknown]

NARRATIVE: CASE EVENT DATE: 20210311
